FAERS Safety Report 21665785 (Version 1)
Quarter: 2022Q4

REPORT INFORMATION
  Report Type: Spontaneous
  Country: US (occurrence: US)
  Receive Date: 20221201
  Receipt Date: 20221201
  Transmission Date: 20230112
  Serious: No
  Sender: FDA-Public Use
  Company Number: US-GBT-016573

PATIENT
  Sex: Male

DRUGS (1)
  1. OXBRYTA [Suspect]
     Active Substance: VOXELOTOR
     Indication: Product used for unknown indication
     Dates: end: 2022

REACTIONS (4)
  - Hypoaesthesia oral [Unknown]
  - Therapy interrupted [Unknown]
  - Paraesthesia oral [Unknown]
  - Nausea [Unknown]
